FAERS Safety Report 7052321-4 (Version None)
Quarter: 2010Q4

REPORT INFORMATION
  Report Type: 
  Country: None (occurrence: None)
  Receive Date: 20101014
  Receipt Date: 20101001
  Transmission Date: 20110411
  Serious: No
  Sender: FDA-Public Use
  Company Number: 019888

PATIENT
  Sex: Male
  Weight: 81.7 kg

DRUGS (1)
  1. KEPPRA [Suspect]
     Indication: CONVULSION
     Dosage: 500 MG BID ORAL
     Route: 048
     Dates: start: 20080101, end: 20100901

REACTIONS (3)
  - CONVULSION [None]
  - SCRATCH [None]
  - TREATMENT NONCOMPLIANCE [None]
